FAERS Safety Report 16146567 (Version 1)
Quarter: 2019Q2

REPORT INFORMATION
  Report Type: Spontaneous
  Country: US (occurrence: US)
  Receive Date: 20190402
  Receipt Date: 20190402
  Transmission Date: 20190711
  Serious: No
  Sender: FDA-Public Use
  Company Number: US-SHIRE-US201910548

PATIENT
  Sex: Male

DRUGS (1)
  1. XIIDRA [Suspect]
     Active Substance: LIFITEGRAST
     Indication: DRY EYE
     Dosage: 1 GTT DROPS, 3X/DAY:TID
     Route: 047

REACTIONS (4)
  - Instillation site reaction [Unknown]
  - Drug ineffective [Unknown]
  - Off label use [Unknown]
  - Vision blurred [Unknown]
